FAERS Safety Report 24344193 (Version 1)
Quarter: 2024Q3

REPORT INFORMATION
  Report Type: Spontaneous
  Country: US (occurrence: US)
  Receive Date: 20240920
  Receipt Date: 20240920
  Transmission Date: 20241017
  Serious: No
  Sender: INSUD PHARMA
  Company Number: US-INSUD PHARMA-2409US06992

PATIENT

DRUGS (2)
  1. PROGESTERONE [Suspect]
     Active Substance: PROGESTERONE
     Indication: Hormone replacement therapy
     Dosage: 200 MG ONE CAPSULE, ONCE AT NIGHT
     Route: 048
  2. PROGESTERONE [Suspect]
     Active Substance: PROGESTERONE
     Dosage: 200 MG ONE CAPSULE, ONCE AT NIGHT
     Route: 048
     Dates: start: 201808

REACTIONS (3)
  - Drug ineffective [Unknown]
  - Product use in unapproved indication [Unknown]
  - Product substitution issue [Unknown]
